FAERS Safety Report 4410493-1 (Version None)
Quarter: 2004Q3

REPORT INFORMATION
  Report Type: 
  Country: None (occurrence: None)
  Receive Date: 20040726
  Receipt Date: 20040712
  Transmission Date: 20050211
  Serious: Yes (Hospitalization)
  Sender: FDA-Public Use
  Company Number: S04-FRA-03044-01

PATIENT
  Age: 77 Year
  Sex: Female

DRUGS (3)
  1. CITALOPRAM HYDROBROMIDE [Suspect]
     Dosage: SEE IMAGE
     Route: 048
     Dates: start: 20040610, end: 20040612
  2. CITALOPRAM HYDROBROMIDE [Suspect]
     Dosage: SEE IMAGE
     Route: 048
     Dates: start: 20040612, end: 20040621
  3. RISPERDAL [Suspect]
     Dosage: 2 MG QD PO
     Route: 048
     Dates: start: 20040528

REACTIONS (3)
  - CONFUSIONAL STATE [None]
  - FALL [None]
  - HYPONATRAEMIA [None]
